FAERS Safety Report 4977727-6 (Version None)
Quarter: 2006Q2

REPORT INFORMATION
  Report Type: 
  Country: None (occurrence: None)
  Receive Date: 20060414
  Receipt Date: 20060327
  Transmission Date: 20061013
  Serious: Yes (Other)
  Sender: FDA-Public Use
  Company Number: HQWYE799512APR06

PATIENT
  Age: 27 Year
  Sex: Male

DRUGS (7)
  1. RAPAMUNE [Suspect]
     Indication: IMMUNOSUPPRESSANT DRUG THERAPY
     Dosage: 3 + 6 MG 1X PER 1 DAY ORAL
     Route: 048
     Dates: start: 20050609, end: 20060119
  2. RAPAMUNE [Suspect]
     Indication: PROPHYLAXIS AGAINST TRANSPLANT REJECTION
     Dosage: 3 + 6 MG 1X PER 1 DAY ORAL
     Route: 048
     Dates: start: 20050609, end: 20060119
  3. RAPAMUNE [Suspect]
     Indication: IMMUNOSUPPRESSANT DRUG THERAPY
     Dosage: 3 + 6 MG 1X PER 1 DAY ORAL
     Route: 048
     Dates: start: 20060120, end: 20060326
  4. RAPAMUNE [Suspect]
     Indication: PROPHYLAXIS AGAINST TRANSPLANT REJECTION
     Dosage: 3 + 6 MG 1X PER 1 DAY ORAL
     Route: 048
     Dates: start: 20060120, end: 20060326
  5. RAPAMUNE [Suspect]
     Indication: IMMUNOSUPPRESSANT DRUG THERAPY
     Dosage: 3 + 6 MG 1X PER 1 DAY ORAL
     Route: 048
     Dates: start: 20060327
  6. RAPAMUNE [Suspect]
     Indication: PROPHYLAXIS AGAINST TRANSPLANT REJECTION
     Dosage: 3 + 6 MG 1X PER 1 DAY ORAL
     Route: 048
     Dates: start: 20060327
  7. PREDNISONE TAB [Concomitant]

REACTIONS (1)
  - KIDNEY TRANSPLANT REJECTION [None]
